FAERS Safety Report 4837723-6 (Version None)
Quarter: 2005Q4

REPORT INFORMATION
  Report Type: 
  Country: None (occurrence: None)
  Receive Date: 20051024
  Receipt Date: 20050719
  Transmission Date: 20060501
  Serious: No
  Sender: FDA-Public Use
  Company Number: 216225

PATIENT
  Age: 68 Year
  Sex: Female
  Weight: 54.9 kg

DRUGS (4)
  1. XOLAIR [Suspect]
     Indication: ASTHMA
     Dosage: 375 MG, Q2W, SUBCUTANEOUS
     Route: 058
     Dates: start: 20050413, end: 20050706
  2. ADVAIR (SALMETEROL XINAFOATE, FLUTICASONE PROPIONATE) [Concomitant]
  3. ALBUTEROL (ALBUTEROL, ALBUTEROL SULFATE) [Concomitant]
  4. M.V.I. (VITAMIN E, VITAMIN B COMPLEX, VITAMIN A, CHOLECALCIFEROL, ASCO [Concomitant]

REACTIONS (1)
  - DYSPNOEA EXACERBATED [None]
